FAERS Safety Report 9220921 (Version 2)
Quarter: 2013Q2

REPORT INFORMATION
  Report Type: Spontaneous
  Country: FR (occurrence: FR)
  Receive Date: 20130409
  Receipt Date: 20130425
  Transmission Date: 20140414
  Serious: Yes (Death, Hospitalization, Other)
  Sender: FDA-Public Use
  Company Number: FR-ABBOTT-12P-056-1016984-00

PATIENT
  Age: 77 Year
  Sex: Male

DRUGS (7)
  1. SECALIP [Suspect]
     Indication: HYPERCHOLESTEROLAEMIA
     Dosage: ONCE
     Route: 048
     Dates: end: 201210
  2. PRADAXA [Suspect]
     Indication: ATRIAL FIBRILLATION
     Route: 048
     Dates: start: 20121011, end: 20121017
  3. CARDENSIEL [Suspect]
     Indication: ATRIAL FIBRILLATION
     Dosage: ONCE
     Route: 048
     Dates: start: 20121011, end: 20121017
  4. ZESTRIL [Suspect]
     Indication: PRODUCT USED FOR UNKNOWN INDICATION
     Dosage: ONCE
     Route: 048
     Dates: end: 201210
  5. LASILIX [Suspect]
     Indication: PRODUCT USED FOR UNKNOWN INDICATION
     Route: 048
     Dates: end: 201210
  6. PERMIXON [Suspect]
     Indication: PRODUCT USED FOR UNKNOWN INDICATION
     Route: 048
     Dates: end: 201210
  7. LEVOTHYROX [Concomitant]
     Indication: HYPOTHYROIDISM
     Route: 048

REACTIONS (12)
  - Septic shock [Fatal]
  - Pancreatitis acute [Unknown]
  - Staphylococcal sepsis [Unknown]
  - Septic shock [Unknown]
  - Multi-organ failure [Unknown]
  - Pneumonia klebsiella [Unknown]
  - Enterobacter sepsis [Unknown]
  - Fungal infection [Unknown]
  - Candida sepsis [Unknown]
  - Pancreatic necrosis [Unknown]
  - Rash macular [Unknown]
  - Ascites [Unknown]
